FAERS Safety Report 5671649-3 (Version None)
Quarter: 2008Q1

REPORT INFORMATION
  Report Type: 
  Country: None (occurrence: None)
  Receive Date: 20080313
  Receipt Date: 20080226
  Transmission Date: 20080703
  Serious: Yes (Hospitalization)
  Sender: FDA-Public Use
  Company Number: DSA_31277_2008

PATIENT
  Age: 47 Year
  Sex: Female

DRUGS (9)
  1. ATIVAN [Suspect]
     Dosage: (19 MG 1X  NOT THE PRESCRIBED AMOUNT)
     Dates: start: 20071229, end: 20071229
  2. ATIVAN [Suspect]
     Dosage: (DF ORAL)
     Route: 048
  3. EFFEXOR XR [Suspect]
     Dosage: (1500 MG 1X NOT THE PRESCRIBED AMOUNT ORAL), (862.5 MG 1X NO THE PRESCRIBED AMOUNT ORAL)
     Route: 048
     Dates: start: 20071229, end: 20071229
  4. EFFEXOR XR [Suspect]
     Indication: HOT FLUSH
     Dosage: (37.5 MG QD ORAL), (150 MG QD ORAL), (225 MG QD ORAL)
     Route: 048
     Dates: start: 20070101, end: 20070101
  5. EFFEXOR XR [Suspect]
     Indication: MOOD SWINGS
     Dosage: (37.5 MG QD ORAL), (150 MG QD ORAL), (225 MG QD ORAL)
     Route: 048
     Dates: start: 20070101, end: 20070101
  6. EFFEXOR XR [Suspect]
     Indication: PANIC ATTACK
     Dosage: (37.5 MG QD ORAL), (150 MG QD ORAL), (225 MG QD ORAL)
     Route: 048
     Dates: start: 20070101, end: 20070101
  7. EFFEXOR XR [Suspect]
     Indication: HOT FLUSH
     Dosage: (37.5 MG QD ORAL), (150 MG QD ORAL), (225 MG QD ORAL)
     Route: 048
     Dates: start: 20070101, end: 20071230
  8. EFFEXOR XR [Suspect]
     Indication: MOOD SWINGS
     Dosage: (37.5 MG QD ORAL), (150 MG QD ORAL), (225 MG QD ORAL)
     Route: 048
     Dates: start: 20070101, end: 20071230
  9. EFFEXOR XR [Suspect]
     Indication: PANIC ATTACK
     Dosage: (37.5 MG QD ORAL), (150 MG QD ORAL), (225 MG QD ORAL)
     Route: 048
     Dates: start: 20070101, end: 20071230

REACTIONS (10)
  - ANGER [None]
  - BACK PAIN [None]
  - CONDITION AGGRAVATED [None]
  - CONTUSION [None]
  - DYSPEPSIA [None]
  - MOOD SWINGS [None]
  - MULTIPLE DRUG OVERDOSE INTENTIONAL [None]
  - MUSCLE SPASMS [None]
  - PANIC ATTACK [None]
  - RENAL PAIN [None]
